FAERS Safety Report 7910142-1 (Version None)
Quarter: 2011Q4

REPORT INFORMATION
  Report Type: 
  Country: None (occurrence: None)
  Receive Date: 20111111
  Receipt Date: 20101110
  Transmission Date: 20120403
  Serious: Yes (Hospitalization)
  Sender: FDA-Public Use
  Company Number: US-ROCHE-738084

PATIENT
  Sex: Female
  Weight: 68 kg

DRUGS (18)
  1. CARBOPLATIN [Suspect]
     Dosage: DOSE LEVEL: 5 AUC
     Route: 042
  2. DECADRON [Concomitant]
     Dosage: DRUG: DECADRON 1 TAB860X 3 DAYS
     Dates: start: 20101017, end: 20101020
  3. HERCEPTIN [Suspect]
     Dosage: FORM: VIAL, DOSE LEVEL : 6 MG/KG, LAST DOSE PRIOR TO SAE ON 29 NOV 2010, DELAY/HOLD: 29 NOV 2010.
     Route: 042
     Dates: start: 20100816, end: 20110328
  4. DOCETAXEL [Suspect]
     Indication: BREAST CANCER
     Dosage: FORM: VIAL, DOSE LEVEL : 60 MG/M2, LAST DOSE PRIOR TO SAE ON 29 NOV  2010
     Route: 042
  5. ALLEGRA [Concomitant]
  6. AVASTIN [Suspect]
     Indication: BREAST CANCER
     Dosage: FORM: VIAL, DOSE LEVEL: 15 MG/KG, LAST DOSE PRIOR TO SAE ON 29 NOV 2010, DELAY/HOLD: 29 NOV 2010.
     Route: 042
     Dates: start: 20100816, end: 20110328
  7. TRAZODONE HCL [Concomitant]
  8. VITAMIN D [Concomitant]
  9. FERROUS SULFATE TAB [Concomitant]
  10. VITAMIN B-12 [Concomitant]
  11. COMPAZINE [Concomitant]
  12. HERCEPTIN [Suspect]
     Indication: BREAST CANCER
     Dosage: LOADING DOSE
     Route: 042
  13. CARBOPLATIN [Suspect]
     Indication: BREAST CANCER
     Dosage: FORM: VIAL, DOSE LEVEL : 6 AUC, LAST DOSE PRIOR TO SAE ON 29 OCT 2010
     Route: 042
  14. OMEPRAZOLE [Concomitant]
  15. PEGFILGRASTIM [Concomitant]
     Dates: start: 20101110, end: 20101110
  16. ZOFRAN [Concomitant]
  17. FISH OIL [Concomitant]
  18. AMLODIPINE [Concomitant]

REACTIONS (5)
  - FEBRILE NEUTROPENIA [None]
  - VOMITING [None]
  - NEUTROPENIA [None]
  - DEHYDRATION [None]
  - NAUSEA [None]
